FAERS Safety Report 7021611-3 (Version None)
Quarter: 2010Q3

REPORT INFORMATION
  Report Type: 
  Country: None (occurrence: None)
  Receive Date: 20100928
  Receipt Date: 20100917
  Transmission Date: 20110219
  Serious: Yes (Other)
  Sender: FDA-Public Use
  Company Number: 2010SP049578

PATIENT
  Sex: Male

DRUGS (1)
  1. DIPROSPAN (BETAMETHASONE SODIUM PHOSPHATE/DIPROPIONATE) (BETAMETHASONE [Suspect]
     Indication: ECZEMA
     Dosage: 1 ML; ONCE; IM
     Route: 030
     Dates: start: 20100917, end: 20100917

REACTIONS (3)
  - CHEST DISCOMFORT [None]
  - DYSPNOEA [None]
  - ERYTHEMA [None]
